FAERS Safety Report 11881121 (Version 2)
Quarter: 2017Q3

REPORT INFORMATION
  Report Type: Spontaneous
  Country: US (occurrence: US)
  Receive Date: 20151230
  Receipt Date: 20170914
  Transmission Date: 20171127
  Serious: No
  Sender: FDA-Public Use
  Company Number: US-ASTRAZENECA-2015SF29659

PATIENT
  Sex: Female
  Weight: 53.5 kg

DRUGS (1)
  1. TUDORZA PRESSAIR [Suspect]
     Active Substance: ACLIDINIUM BROMIDE
     Indication: ASTHMA
     Route: 055

REACTIONS (4)
  - Off label use [Unknown]
  - Device malfunction [Unknown]
  - Asthma [Unknown]
  - Product use in unapproved indication [Unknown]
